FAERS Safety Report 10496188 (Version 1)
Quarter: 2014Q4

REPORT INFORMATION
  Report Type: Spontaneous
  Country: US (occurrence: US)
  Receive Date: 20141003
  Receipt Date: 20141003
  Transmission Date: 20150528
  Serious: No
  Sender: FDA-Public Use
  Company Number: US-TEVA-506023USA

PATIENT
  Sex: Female
  Weight: 70.3 kg

DRUGS (1)
  1. NUVIGIL [Suspect]
     Active Substance: ARMODAFINIL
     Indication: NARCOLEPSY
     Dosage: 150 MILLIGRAM DAILY;
     Route: 048
     Dates: start: 20140716, end: 20140810

REACTIONS (3)
  - Mood swings [Unknown]
  - Abnormal behaviour [Unknown]
  - Irritability [Unknown]
